FAERS Safety Report 5726701-0 (Version None)
Quarter: 2008Q2

REPORT INFORMATION
  Report Type: 
  Country: None (occurrence: None)
  Receive Date: 20080502
  Receipt Date: 20080421
  Transmission Date: 20081010
  Serious: Yes (Other)
  Sender: FDA-Public Use
  Company Number: CA-PFIZER INC-2008035844

PATIENT
  Age: 47 Year
  Sex: Male

DRUGS (2)
  1. CHAMPIX [Suspect]
  2. ALCOHOL [Suspect]

REACTIONS (2)
  - LOSS OF CONSCIOUSNESS [None]
  - THEFT [None]
